FAERS Safety Report 14309481 (Version 1)
Quarter: 2017Q4

REPORT INFORMATION
  Report Type: Spontaneous
  Country: US (occurrence: US)
  Receive Date: 20171220
  Receipt Date: 20171220
  Transmission Date: 20180321
  Serious: No
  Sender: FDA-Public Use
  Company Number: None

PATIENT
  Age: 85 Year
  Sex: Male
  Weight: 88.45 kg

DRUGS (3)
  1. ZOCOR [Concomitant]
     Active Substance: SIMVASTATIN
  2. AMITRIPTYLINE [Suspect]
     Active Substance: AMITRIPTYLINE
     Indication: LARYNX IRRITATION
     Route: 048
  3. ASPERIN [Concomitant]

REACTIONS (2)
  - Hypertension [None]
  - Pulse abnormal [None]

NARRATIVE: CASE EVENT DATE: 201711
